FAERS Safety Report 8691544 (Version 3)
Quarter: 2013Q1

REPORT INFORMATION
  Report Type: Spontaneous
  Country: CO (occurrence: CO)
  Receive Date: 20120730
  Receipt Date: 20130118
  Transmission Date: 20140127
  Serious: Yes (Hospitalization, Other)
  Sender: FDA-Public Use
  Company Number: CO-PFIZER INC-2012180234

PATIENT
  Age: 6 Year
  Sex: Female

DRUGS (1)
  1. GENOTROPIN [Suspect]
     Indication: TURNER^S SYNDROME
     Dosage: 1.2 MG, 1X/DAY
     Route: 058
     Dates: start: 201204

REACTIONS (2)
  - Rickets [Not Recovered/Not Resolved]
  - Pyrexia [Recovered/Resolved]
